FAERS Safety Report 21340910 (Version 6)
Quarter: 2023Q2

REPORT INFORMATION
  Report Type: Spontaneous
  Country: GB (occurrence: GB)
  Receive Date: 20220916
  Receipt Date: 20230409
  Transmission Date: 20230722
  Serious: Yes (Hospitalization, Other)
  Sender: FDA-Public Use
  Company Number: GB-JNJFOC-20220335018

PATIENT
  Age: 76 Year
  Sex: Male

DRUGS (5)
  1. ALENDRONIC ACID [Suspect]
     Active Substance: ALENDRONIC ACID
     Indication: Osteoporosis prophylaxis
     Dosage: UNK UNK, EVERY WEEK
     Route: 048
  2. ERLEADA [Suspect]
     Active Substance: APALUTAMIDE
     Indication: Prostate cancer
     Dosage: 180 MILLIGRAM, ONCE A DAY
     Route: 048
  3. ERLEADA [Suspect]
     Active Substance: APALUTAMIDE
     Dosage: 120 MILLIGRAM, ONCE A DAY
     Route: 048
     Dates: start: 20220120, end: 20230222
  4. ERLEADA [Suspect]
     Active Substance: APALUTAMIDE
     Dosage: 240 MILLIGRAM, ONCE A DAY
     Route: 048
     Dates: start: 20220120
  5. ERLEADA [Suspect]
     Active Substance: APALUTAMIDE
     Dosage: 180 MILLIGRAM, ONCE A DAY
     Route: 048
     Dates: start: 20220722

REACTIONS (7)
  - Pruritus [Recovering/Resolving]
  - Fall [Recovered/Resolved]
  - Fatigue [Recovering/Resolving]
  - Hypertension [Recovering/Resolving]
  - Contrast media reaction [Recovered/Resolved]
  - Treatment noncompliance [Unknown]
  - Prostatic specific antigen increased [Not Recovered/Not Resolved]

NARRATIVE: CASE EVENT DATE: 20220201
